FAERS Safety Report 23243406 (Version 1)
Quarter: 2023Q4

REPORT INFORMATION
  Report Type: Spontaneous
  Country: GB (occurrence: GB)
  Receive Date: 20231130
  Receipt Date: 20231130
  Transmission Date: 20240109
  Serious: Yes (Other)
  Sender: FDA-Public Use
  Company Number: None

PATIENT
  Sex: Female

DRUGS (1)
  1. METRONIDAZOLE [Suspect]
     Active Substance: METRONIDAZOLE
     Indication: Dental care
     Route: 065

REACTIONS (7)
  - Tinnitus [Unknown]
  - Hypoacusis [Recovering/Resolving]
  - Somnolence [Unknown]
  - Chromaturia [Unknown]
  - Myalgia [Unknown]
  - Decreased appetite [Unknown]
  - Arthralgia [Unknown]
